FAERS Safety Report 12882249 (Version 2)
Quarter: 2016Q4

REPORT INFORMATION
  Report Type: Spontaneous
  Country: FR (occurrence: FR)
  Receive Date: 20161025
  Receipt Date: 20161025
  Transmission Date: 20170207
  Serious: Yes (Other)
  Sender: FDA-Public Use
  Company Number: FR-ABBVIE-16P-056-1762237-00

PATIENT
  Sex: Female

DRUGS (1)
  1. DEPAKINE [Suspect]
     Active Substance: VALPROATE SODIUM
     Indication: PRODUCT USED FOR UNKNOWN INDICATION
     Route: 065

REACTIONS (6)
  - Kidney malformation [Not Recovered/Not Resolved]
  - Developmental coordination disorder [Unknown]
  - Speech disorder developmental [Unknown]
  - Learning disorder [Unknown]
  - Abnormal behaviour [Not Recovered/Not Resolved]
  - Cognitive disorder [Unknown]
